FAERS Safety Report 17117316 (Version 1)
Quarter: 2019Q4

REPORT INFORMATION
  Report Type: Spontaneous
  Country: US (occurrence: US)
  Receive Date: 20191205
  Receipt Date: 20191205
  Transmission Date: 20200122
  Serious: Yes (Hospitalization, Other)
  Sender: FDA-Public Use
  Company Number: US-AMNEAL PHARMACEUTICALS-2019-AMRX-03050

PATIENT
  Age: 75 Year
  Sex: Female
  Weight: 59 kg

DRUGS (3)
  1. PEPCID [Concomitant]
     Active Substance: FAMOTIDINE
     Indication: PRODUCT USED FOR UNKNOWN INDICATION
     Dosage: 40 MILLIGRAM, BEDTIME
     Route: 065
     Dates: start: 20191120
  2. RANITIDINE. [Suspect]
     Active Substance: RANITIDINE
     Indication: GASTROOESOPHAGEAL REFLUX DISEASE
     Dosage: 150 MILLIGRAM, BEDTIME
     Route: 048
     Dates: start: 20190301, end: 201911
  3. RANITIDINE. [Suspect]
     Active Substance: RANITIDINE
     Dosage: 300 MILLIGRAM, MORNING
     Route: 048
     Dates: start: 20190301, end: 201911

REACTIONS (3)
  - Throat irritation [Not Recovered/Not Resolved]
  - Atrial fibrillation [Not Recovered/Not Resolved]
  - Dyspepsia [Not Recovered/Not Resolved]

NARRATIVE: CASE EVENT DATE: 20190501
